FAERS Safety Report 20966907 (Version 1)
Quarter: 2022Q2

REPORT INFORMATION
  Report Type: Spontaneous
  Country: PL (occurrence: PL)
  Receive Date: 20220616
  Receipt Date: 20220616
  Transmission Date: 20220721
  Serious: Yes (Other)
  Sender: FDA-Public Use
  Company Number: PL-TEVA-2022-PL-2046895

PATIENT
  Age: 75 Year
  Sex: Female

DRUGS (1)
  1. CYCLOSPORINE [Suspect]
     Active Substance: CYCLOSPORINE
     Indication: Rheumatoid arthritis
     Dosage: 100 MILLIGRAM DAILY; MORNING AND EVENING

REACTIONS (3)
  - Retinal detachment [Unknown]
  - Diplopia [Unknown]
  - Muscular weakness [Unknown]
